FAERS Safety Report 22195094 (Version 1)
Quarter: 2023Q2

REPORT INFORMATION
  Report Type: Spontaneous
  Country: IL (occurrence: None)
  Receive Date: 20230411
  Receipt Date: 20230411
  Transmission Date: 20230721
  Serious: Yes (Other)
  Sender: FDA-Public Use
  Company Number: IL-ROCHE-3323996

PATIENT
  Age: 35 Year
  Sex: Female

DRUGS (3)
  1. ALECTINIB [Suspect]
     Active Substance: ALECTINIB
     Indication: Neoplasm progression
     Route: 065
     Dates: end: 20230402
  2. ALECTINIB [Suspect]
     Active Substance: ALECTINIB
     Indication: Brain oedema
  3. CRIZOTINIB [Suspect]
     Active Substance: CRIZOTINIB
     Indication: Neoplasm progression
     Route: 065

REACTIONS (2)
  - Neoplasm progression [Unknown]
  - Brain oedema [Unknown]

NARRATIVE: CASE EVENT DATE: 20220101
